FAERS Safety Report 24717190 (Version 1)
Quarter: 2024Q4

REPORT INFORMATION
  Report Type: Other
  Country: IT (occurrence: IT)
  Receive Date: 20241210
  Receipt Date: 20241210
  Transmission Date: 20250115
  Serious: Yes (Life-Threatening)
  Sender: Atnahs Healthcare
  Company Number: None

PATIENT
  Age: 60 Year
  Sex: Female

DRUGS (3)
  1. VALIUM [Suspect]
     Active Substance: DIAZEPAM
     Indication: Anxiety
     Dosage: 5 MG 22 COMPRESS
     Route: 048
     Dates: start: 20241029, end: 20241029
  2. LEVOMEPROMAZINE [Suspect]
     Active Substance: LEVOMEPROMAZINE
     Indication: Psychotic disorder
     Dosage: 25 MG 10 COMPRESSE
     Route: 048
     Dates: start: 20241029, end: 20241029
  3. CHLORPROMAZINE [Suspect]
     Active Substance: CHLORPROMAZINE
     Indication: Psychotic disorder
     Dosage: 100 MG 25 COMPRESSE
     Route: 048
     Dates: start: 20241029, end: 20241029

REACTIONS (6)
  - Sopor [Unknown]
  - Disorganised speech [Unknown]
  - Fatigue [Unknown]
  - Hyponatraemia [Unknown]
  - Toxicity to various agents [Unknown]
  - Drug abuse [Unknown]

NARRATIVE: CASE EVENT DATE: 20241029
